FAERS Safety Report 6671476-4 (Version None)
Quarter: 2010Q2

REPORT INFORMATION
  Report Type: 
  Country: None (occurrence: None)
  Receive Date: 20100407
  Receipt Date: 20100331
  Transmission Date: 20101027
  Serious: Yes (Hospitalization, Other)
  Sender: FDA-Public Use
  Company Number: US-MERCK-1001USA03816

PATIENT
  Age: 43 Year
  Sex: Female

DRUGS (3)
  1. FOSAMAX [Suspect]
     Indication: OSTEOPOROSIS
     Route: 048
  2. ZOMETA [Suspect]
     Indication: BREAST CANCER
     Route: 042
     Dates: start: 20060101, end: 20080401
  3. ANTINEOPLASTIC (UNSPECIFIED) [Suspect]
     Indication: BREAST CANCER
     Route: 065
     Dates: start: 20030101

REACTIONS (22)
  - ABDOMINAL PAIN [None]
  - ADVERSE EVENT [None]
  - ANGIOPATHY [None]
  - APPENDIX DISORDER [None]
  - BONE DISORDER [None]
  - BREAST CANCER METASTATIC [None]
  - BREATH ODOUR [None]
  - DENTAL CARIES [None]
  - DEPRESSION [None]
  - EXOSTOSIS [None]
  - FRACTURE [None]
  - HYPERLIPIDAEMIA [None]
  - HYPERTENSION [None]
  - IMPAIRED HEALING [None]
  - JAW FRACTURE [None]
  - NERVE INJURY [None]
  - ORAL TORUS [None]
  - OSTEITIS [None]
  - OSTEONECROSIS [None]
  - SINUSITIS [None]
  - TOOTH LOSS [None]
  - UTERINE DISORDER [None]
